FAERS Safety Report 20096972 (Version 2)
Quarter: 2021Q4

REPORT INFORMATION
  Report Type: Report from Study
  Country: KW (occurrence: KW)
  Receive Date: 20211122
  Receipt Date: 20211125
  Transmission Date: 20220303
  Serious: Yes (Disabling)
  Sender: FDA-Public Use
  Company Number: KW-ABBVIE-21K-091-4169384-00

PATIENT
  Sex: Female

DRUGS (3)
  1. CARBIDOPA\LEVODOPA [Suspect]
     Active Substance: CARBIDOPA\LEVODOPA
     Indication: Parkinson^s disease
     Dosage: MORNING DOSE 15ML, CONTINUOUS RATE 3.7ML/HR, EXTRA DOSE 2ML
     Route: 050
     Dates: start: 20211005, end: 20211117
  2. CARBIDOPA\LEVODOPA [Suspect]
     Active Substance: CARBIDOPA\LEVODOPA
     Dosage: MORNING DOSE 15ML, CONTINUOUS RATE 4.5ML/HR, EXTRA DOSE 3ML
     Route: 050
     Dates: start: 20211117, end: 202111
  3. CARBIDOPA\LEVODOPA [Suspect]
     Active Substance: CARBIDOPA\LEVODOPA
     Dosage: MORNING DOSE 15ML, CONTINUOUS RATE 5.5ML/HR, EXTRA DOSE 4ML
     Route: 050
     Dates: start: 20211121

REACTIONS (5)
  - Mobility decreased [Not Recovered/Not Resolved]
  - Speech disorder [Not Recovered/Not Resolved]
  - On and off phenomenon [Not Recovered/Not Resolved]
  - Parkinson^s disease [Unknown]
  - Musculoskeletal stiffness [Recovering/Resolving]

NARRATIVE: CASE EVENT DATE: 20210101
